APPROVED DRUG PRODUCT: PANTOPRAZOLE SODIUM
Active Ingredient: PANTOPRAZOLE SODIUM
Strength: EQ 40MG BASE
Dosage Form/Route: TABLET, DELAYED RELEASE;ORAL
Application: A215880 | Product #001 | TE Code: AB
Applicant: MANKIND PHARMA LTD
Approved: Jul 26, 2022 | RLD: No | RS: No | Type: RX